FAERS Safety Report 9832490 (Version 1)
Quarter: 2014Q1

REPORT INFORMATION
  Report Type: Spontaneous
  Country: US (occurrence: US)
  Receive Date: 20140121
  Receipt Date: 20140121
  Transmission Date: 20141002
  Serious: Yes (Death)
  Sender: FDA-Public Use
  Company Number: US-ACTELION-A-US2014-93776

PATIENT
  Age: 80 Year
  Sex: Female

DRUGS (3)
  1. OPSUMIT [Suspect]
     Indication: PRODUCT USED FOR UNKNOWN INDICATION
     Dosage: 10 MG, QD
     Route: 048
  2. REVATIO [Concomitant]
  3. TYVASO [Concomitant]

REACTIONS (2)
  - Death [Fatal]
  - Mental disorder [Unknown]
